FAERS Safety Report 9684535 (Version 1)
Quarter: 2013Q4

REPORT INFORMATION
  Report Type: Spontaneous
  Country: US (occurrence: US)
  Receive Date: 20131112
  Receipt Date: 20131112
  Transmission Date: 20140711
  Serious: No
  Sender: FDA-Public Use
  Company Number: US-PFIZER INC-2013319736

PATIENT
  Sex: Male

DRUGS (2)
  1. VIAGRA [Suspect]
     Dosage: 100 MG, UNK
     Dates: start: 2008, end: 201310
  2. VIAGRA [Suspect]
     Dosage: 200 MG, UNK
     Dates: start: 201310

REACTIONS (1)
  - Drug ineffective [Unknown]
